FAERS Safety Report 16421968 (Version 1)
Quarter: 2019Q2

REPORT INFORMATION
  Report Type: Spontaneous
  Country: US (occurrence: US)
  Receive Date: 20190612
  Receipt Date: 20190612
  Transmission Date: 20190711
  Serious: No
  Sender: FDA-Public Use
  Company Number: US-PERRIGO-18US013283

PATIENT
  Age: 74 Year
  Sex: Male
  Weight: 86.17 kg

DRUGS (2)
  1. MINOXIDIL. [Suspect]
     Active Substance: MINOXIDIL
     Dosage: 1/2 CAPFUL, QD
     Route: 061
     Dates: start: 201901, end: 20190114
  2. MINOXIDIL. [Suspect]
     Active Substance: MINOXIDIL
     Indication: ALOPECIA
     Dosage: 1/2 CAPFUL, BID
     Route: 061
     Dates: start: 201810, end: 201811

REACTIONS (7)
  - Lacrimation increased [Recovering/Resolving]
  - Application site pain [Unknown]
  - Erythema [Recovering/Resolving]
  - Inappropriate schedule of product administration [Recovered/Resolved]
  - Visual acuity reduced [Recovering/Resolving]
  - Chemical burn [Recovering/Resolving]
  - Skin exfoliation [Recovering/Resolving]

NARRATIVE: CASE EVENT DATE: 201810
